FAERS Safety Report 4685323-3 (Version None)
Quarter: 2005Q2

REPORT INFORMATION
  Report Type: 
  Country: None (occurrence: None)
  Receive Date: 20050606
  Receipt Date: 20050606
  Transmission Date: 20051028
  Serious: Yes (Other)
  Sender: FDA-Public Use
  Company Number: None

PATIENT
  Sex: Female
  Weight: 81.6475 kg

DRUGS (1)
  1. NEOSPORIN [Suspect]
     Indication: CHAPPED LIPS
     Dosage: ONCE TOPICALLY
     Route: 061

REACTIONS (2)
  - BURNING SENSATION [None]
  - HERPES SIMPLEX [None]
